FAERS Safety Report 8590436-X (Version None)
Quarter: 2012Q3

REPORT INFORMATION
  Report Type: 
  Country: None (occurrence: None)
  Receive Date: 20120813
  Receipt Date: 20120803
  Transmission Date: 20120928
  Serious: Yes (Other)
  Sender: FDA-Public Use
  Company Number: US-ASTRAZENECA-2012SE55132

PATIENT
  Age: 87 Year
  Sex: Female
  Weight: 56.2 kg

DRUGS (10)
  1. CALCIUM [Concomitant]
     Indication: MINERAL SUPPLEMENTATION
  2. NEXIUM [Suspect]
     Indication: GASTROOESOPHAGEAL REFLUX DISEASE
     Route: 048
  3. PRAVASTATIN [Concomitant]
     Indication: PROPHYLAXIS
  4. MULTIVITAMIN [Concomitant]
     Indication: MACULAR DEGENERATION
  5. ASPIRIN [Concomitant]
     Indication: CARDIOVASCULAR EVENT PROPHYLAXIS
  6. CELEBREX [Concomitant]
     Indication: ARTHRITIS
  7. ASCORBIC ACID [Concomitant]
     Indication: VITAMIN SUPPLEMENTATION
  8. CARVEDILOL [Concomitant]
     Indication: HYPERTENSION
  9. LOSARTAN POTASSIUM [Concomitant]
     Indication: HYPERTENSION
  10. MULTI-VITAMIN [Concomitant]
     Indication: VITAMIN SUPPLEMENTATION
     Route: 048

REACTIONS (2)
  - DIABETES MELLITUS [None]
  - MACULAR DEGENERATION [None]
